FAERS Safety Report 6030070-9 (Version None)
Quarter: 2009Q1

REPORT INFORMATION
  Report Type: 
  Country: None (occurrence: None)
  Receive Date: 20090106
  Receipt Date: 20090106
  Transmission Date: 20090719
  Serious: No
  Sender: FDA-Public Use
  Company Number: None

PATIENT
  Age: 48 Year
  Sex: Female
  Weight: 63.5036 kg

DRUGS (3)
  1. CYMBALTA [Suspect]
     Indication: ANXIETY
     Dosage: 60 MG DAY PO
     Route: 048
     Dates: start: 20070508, end: 20081225
  2. CYMBALTA [Suspect]
     Indication: DEPRESSION
     Dosage: 60 MG DAY PO
     Route: 048
     Dates: start: 20070508, end: 20081225
  3. CYMBALTA [Suspect]
     Dosage: 30 MG 2 CAPSULE A DAY PO
     Route: 048
     Dates: start: 20081209, end: 20081225

REACTIONS (9)
  - ANOREXIA [None]
  - CRYING [None]
  - DRUG DOSE OMISSION [None]
  - ILL-DEFINED DISORDER [None]
  - INSOMNIA [None]
  - IRRITABILITY [None]
  - MALAISE [None]
  - SINUSITIS [None]
  - WITHDRAWAL SYNDROME [None]
